FAERS Safety Report 26061772 (Version 1)
Quarter: 2025Q4

REPORT INFORMATION
  Report Type: Spontaneous
  Country: US (occurrence: US)
  Receive Date: 20251118
  Receipt Date: 20251118
  Transmission Date: 20260118
  Serious: Yes (Hospitalization)
  Sender: AZURITY PHARMACEUTICALS
  Company Number: US-AZURITY PHARMACEUTICALS, INC.-AZR202509-002751

PATIENT
  Sex: Female

DRUGS (2)
  1. DANZITEN [Suspect]
     Active Substance: NILOTINIB
     Indication: Philadelphia positive chronic myeloid leukaemia
     Dosage: 142 MILLIGRAM, BID
     Route: 065
     Dates: start: 20250830
  2. DANZITEN [Suspect]
     Active Substance: NILOTINIB
     Dosage: 142 MILLIGRAM, QD
     Route: 065
     Dates: start: 202510

REACTIONS (10)
  - Hospitalisation [Unknown]
  - Nausea [Unknown]
  - Anxiety [Unknown]
  - Blood glucose increased [Unknown]
  - Dyspepsia [Unknown]
  - Fatigue [Unknown]
  - Anaemia [Unknown]
  - Pleural effusion [Unknown]
  - Adverse drug reaction [Unknown]
  - Product dose omission issue [Unknown]
